FAERS Safety Report 21070292 (Version 2)
Quarter: 2022Q3

REPORT INFORMATION
  Report Type: Spontaneous
  Country: NZ (occurrence: NZ)
  Receive Date: 20220712
  Receipt Date: 20220803
  Transmission Date: 20221027
  Serious: Yes (Death, Life-Threatening, Hospitalization, Other)
  Sender: FDA-Public Use
  Company Number: NZ-BRISTOL-MYERS SQUIBB COMPANY-2022-072717

PATIENT
  Age: 70 Year
  Sex: Male
  Weight: 85 kg

DRUGS (48)
  1. AZACITIDINE [Suspect]
     Active Substance: AZACITIDINE
     Indication: Acute myeloid leukaemia
     Route: 042
     Dates: start: 20220502
  2. AZACITIDINE [Suspect]
     Active Substance: AZACITIDINE
     Route: 042
     Dates: start: 20220510
  3. BGB-11417 [Suspect]
     Active Substance: BGB-11417
     Indication: Acute myeloid leukaemia
     Route: 048
     Dates: start: 20220502
  4. BGB-11417 [Suspect]
     Active Substance: BGB-11417
     Route: 048
     Dates: start: 20220505
  5. LOPERAMIDE [Concomitant]
     Active Substance: LOPERAMIDE
     Indication: Diarrhoea
     Route: 048
     Dates: start: 2022
  6. MAGNESIUM SULFATE [Concomitant]
     Active Substance: MAGNESIUM SULFATE
     Indication: Prophylaxis
     Route: 042
     Dates: start: 20220510, end: 20220510
  7. GRANULOCYTE COLONY-STIMULATING FACTOR NOS [Concomitant]
     Active Substance: GRANULOCYTE COLONY-STIMULATING FACTOR NOS
     Indication: Neutrophil count decreased
     Route: 058
     Dates: start: 20220517, end: 20220517
  8. GRANULOCYTE COLONY-STIMULATING FACTOR NOS [Concomitant]
     Active Substance: GRANULOCYTE COLONY-STIMULATING FACTOR NOS
     Indication: Febrile neutropenia
  9. GENTAMICIN [Concomitant]
     Active Substance: GENTAMICIN
     Indication: Perineal abscess
     Route: 042
     Dates: start: 20220517, end: 20220517
  10. PIPERACILLIN AND TAZOBACTAM [Concomitant]
     Active Substance: PIPERACILLIN SODIUM\TAZOBACTAM SODIUM
     Indication: Perineal abscess
     Route: 042
     Dates: start: 20220517, end: 20220517
  11. MEROPENEM [Concomitant]
     Active Substance: MEROPENEM
     Indication: Perineal abscess
     Route: 042
     Dates: start: 20220517, end: 20220518
  12. TRANEXAMIC ACID [Concomitant]
     Active Substance: TRANEXAMIC ACID
     Indication: Platelet count decreased
     Route: 042
     Dates: start: 20220517
  13. SODIUM CHLORIDE [Concomitant]
     Active Substance: SODIUM CHLORIDE
     Indication: Prophylaxis against dehydration
     Route: 042
     Dates: start: 20220517, end: 20220518
  14. SODIUM CHLORIDE [Concomitant]
     Active Substance: SODIUM CHLORIDE
     Indication: Dehydration
  15. Marcaine adrenaline [Concomitant]
     Indication: Perineal abscess
     Route: 061
     Dates: start: 20220517, end: 20220517
  16. CEFUROXIME [Concomitant]
     Active Substance: CEFUROXIME
     Indication: Perineal abscess
     Dosage: UNK
     Route: 042
     Dates: start: 20220518, end: 20220523
  17. CEFUROXIME [Concomitant]
     Active Substance: CEFUROXIME
     Dosage: UNK
     Route: 048
     Dates: start: 20220525, end: 20220614
  18. VANCOMYCIN [Concomitant]
     Active Substance: VANCOMYCIN
     Indication: Perineal abscess
     Dosage: UNK
     Route: 042
     Dates: start: 20220519, end: 20220522
  19. VANCOMYCIN [Concomitant]
     Active Substance: VANCOMYCIN
     Dosage: UNK
     Dates: start: 20220522, end: 20220614
  20. FENTANYL [Concomitant]
     Active Substance: FENTANYL
     Indication: Surgery
     Route: 042
     Dates: start: 20220517, end: 20220517
  21. FENTANYL [Concomitant]
     Active Substance: FENTANYL
     Indication: Product used for unknown indication
  22. METARAMINOL [Concomitant]
     Active Substance: METARAMINOL
     Indication: Surgery
     Route: 042
     Dates: start: 20220517, end: 20220517
  23. PROPOFOL [Concomitant]
     Active Substance: PROPOFOL
     Indication: Surgery
     Route: 042
     Dates: start: 20220517, end: 20220517
  24. PROPOFOL [Concomitant]
     Active Substance: PROPOFOL
     Indication: Product used for unknown indication
  25. ELECTROLYTES NOS [Concomitant]
     Active Substance: ELECTROLYTES NOS
     Indication: Surgery
     Route: 042
     Dates: start: 20220517, end: 20220517
  26. CYCLIZINE [Concomitant]
     Active Substance: CYCLIZINE
     Indication: Prophylaxis of nausea and vomiting
     Route: 048
     Dates: start: 20220518
  27. SCOPOLAMINE [Concomitant]
     Active Substance: SCOPOLAMINE
     Indication: Prophylaxis of nausea and vomiting
     Route: 062
     Dates: start: 20220520
  28. DOXYCYCLINE [Concomitant]
     Active Substance: DOXYCYCLINE
     Indication: Perineal abscess
     Route: 048
     Dates: start: 20220503, end: 20220518
  29. CLINDAMYCIN [Concomitant]
     Active Substance: CLINDAMYCIN
     Indication: Abscess
     Route: 048
     Dates: start: 20220426, end: 20220430
  30. ALLOPURINOL APOTEX [Concomitant]
     Indication: Prophylaxis
     Route: 048
     Dates: start: 20220502
  31. METOCLOPRAMIDE [Concomitant]
     Active Substance: METOCLOPRAMIDE
     Indication: Prophylaxis of nausea and vomiting
     Route: 048
     Dates: start: 20220502
  32. ONDANSETRON [Concomitant]
     Active Substance: ONDANSETRON
     Indication: Prophylaxis of nausea and vomiting
     Route: 048
     Dates: start: 20220502
  33. ATORVASTATIN [Concomitant]
     Active Substance: ATORVASTATIN
     Indication: Myocardial ischaemia
     Route: 048
     Dates: start: 20120306
  34. PIPERACILLIN AND TAZOBACTAM [Concomitant]
     Active Substance: PIPERACILLIN SODIUM\TAZOBACTAM SODIUM
     Indication: Perineal abscess
     Route: 042
     Dates: start: 20220517, end: 20220517
  35. FUROSEMIDE [Concomitant]
     Active Substance: FUROSEMIDE
     Indication: Myocardial ischaemia
     Route: 048
     Dates: start: 20220518
  36. OMEPRAZOLE [Concomitant]
     Active Substance: OMEPRAZOLE
     Indication: Product used for unknown indication
     Route: 048
     Dates: start: 20220506
  37. Marcaine adrenaline [Concomitant]
     Indication: Perineal abscess
     Route: 061
     Dates: start: 20220517, end: 20220517
  38. ASPIRIN [Concomitant]
     Active Substance: ASPIRIN
     Indication: Hypertension
     Route: 048
     Dates: start: 201109
  39. ASPIRIN [Concomitant]
     Active Substance: ASPIRIN
     Indication: Cardiac disorder
  40. METARAMINOL BITARTRATE [Concomitant]
     Active Substance: METARAMINOL BITARTRATE
     Indication: Product used for unknown indication
     Route: 042
     Dates: start: 20220517, end: 20220517
  41. METFORMIN [Concomitant]
     Active Substance: METFORMIN HYDROCHLORIDE
     Indication: Type 3 diabetes mellitus
     Route: 048
     Dates: start: 202203
  42. GLUCONATE SODIUM;MAGNESIUM CHLORIDE HEXAHYDRATE [Concomitant]
     Indication: Product used for unknown indication
     Route: 042
     Dates: start: 20220517, end: 20220517
  43. ACETAMINOPHEN [Concomitant]
     Active Substance: ACETAMINOPHEN
     Indication: Perineal abscess
     Route: 048
     Dates: start: 202205
  44. AUGMENTIN [Concomitant]
     Active Substance: AMOXICILLIN\CLAVULANATE POTASSIUM
     Indication: Abscess
     Route: 048
     Dates: start: 20220425, end: 20220430
  45. CIPROFLOXACIN [Concomitant]
     Active Substance: CIPROFLOXACIN
     Indication: Abscess
     Route: 048
     Dates: start: 20220426, end: 20220428
  46. ALLOPURINOL [Concomitant]
     Active Substance: ALLOPURINOL
     Indication: Gout
     Route: 048
     Dates: start: 20220502
  47. METOCLOPRAMIDE HYDROCHLORIDE [Concomitant]
     Active Substance: METOCLOPRAMIDE HYDROCHLORIDE
     Indication: Prophylaxis of nausea and vomiting
     Route: 048
     Dates: start: 20220502
  48. MORPHINE SULFATE [Concomitant]
     Active Substance: MORPHINE SULFATE
     Indication: Perineal abscess
     Route: 048
     Dates: start: 202205, end: 20220614

REACTIONS (2)
  - Neutropenic sepsis [Fatal]
  - Perineal abscess [Not Recovered/Not Resolved]

NARRATIVE: CASE EVENT DATE: 20220525
